FAERS Safety Report 11078530 (Version 1)
Quarter: 2015Q2

REPORT INFORMATION
  Report Type: Other
  Country: GB (occurrence: GB)
  Receive Date: 20150430
  Receipt Date: 20150430
  Transmission Date: 20150821
  Serious: Yes (Hospitalization, Other)
  Sender: FDA-Public Use
  Company Number: GB-TARO PHARMACEUTICALS U.S.A., INC-2015SUN01051

PATIENT

DRUGS (16)
  1. COCODAMOL [Concomitant]
     Active Substance: ACETAMINOPHEN\CODEINE PHOSPHATE
     Dates: start: 20140725, end: 20150331
  2. SIMVASTATIN. [Concomitant]
     Active Substance: SIMVASTATIN
     Dosage: AT NIGHT
     Dates: start: 20140725, end: 20150410
  3. FOSTAIR [Concomitant]
     Active Substance: BECLOMETHASONE\FORMOTEROL
     Dates: start: 20140725
  4. SALBUTAMOL [Concomitant]
     Active Substance: ALBUTEROL
     Route: 055
     Dates: start: 20140725
  5. WARFARIN [Suspect]
     Active Substance: WARFARIN
     Indication: PRODUCT USED FOR UNKNOWN INDICATION
     Dates: start: 20150320
  6. FINASTERIDE. [Concomitant]
     Active Substance: FINASTERIDE
     Dates: start: 20140725, end: 20150410
  7. MOMETASONE [Concomitant]
     Active Substance: MOMETASONE
     Dates: start: 20140725
  8. CO-AMOXICLAV [Concomitant]
     Active Substance: AMOXICILLIN\CLAVULANIC ACID
     Dates: start: 20150325, end: 20150401
  9. INDAPAMIDE. [Concomitant]
     Active Substance: INDAPAMIDE
     Dosage: EACH MORNING
     Dates: start: 20140725, end: 20150325
  10. OMEPRAZOLE. [Concomitant]
     Active Substance: OMEPRAZOLE
     Dates: start: 20140725
  11. PARACETAMOL [Concomitant]
     Active Substance: ACETAMINOPHEN
     Indication: PAIN
     Dosage: TAKE 1 OR 2
     Dates: start: 20150320
  12. NEFOPAM [Concomitant]
     Active Substance: NEFOPAM
     Dates: start: 20150320, end: 20150331
  13. ASPIRIN. [Concomitant]
     Active Substance: ASPIRIN
     Dates: start: 20140725, end: 20150320
  14. RAMIPRIL. [Concomitant]
     Active Substance: RAMIPRIL
     Dates: start: 20140725, end: 20150325
  15. ENOXAPARIN [Concomitant]
     Active Substance: ENOXAPARIN
     Dates: start: 20150327, end: 20150401
  16. ZOPICLONE [Concomitant]
     Active Substance: ZOPICLONE
     Dosage: TAKE ONE OR TWO AT NIGHT
     Dates: start: 20150325

REACTIONS (2)
  - Purpura [Recovered/Resolved]
  - Acute kidney injury [Recovered/Resolved]

NARRATIVE: CASE EVENT DATE: 20150402
